FAERS Safety Report 4633145-1 (Version None)
Quarter: 2005Q2

REPORT INFORMATION
  Report Type: 
  Country: None (occurrence: None)
  Receive Date: 20050412
  Receipt Date: 20050407
  Transmission Date: 20051028
  Serious: Yes (Hospitalization)
  Sender: FDA-Public Use
  Company Number: FR-GLAXOSMITHKLINE-B0377322A

PATIENT
  Age: 78 Year
  Sex: Male
  Weight: 79 kg

DRUGS (8)
  1. AUGMENTIN '125' [Suspect]
     Dosage: 2G THREE TIMES PER DAY
     Route: 042
     Dates: start: 20050303, end: 20050308
  2. TAVANIC [Suspect]
     Dosage: 500MG PER DAY
     Route: 042
     Dates: start: 20050303, end: 20050308
  3. MOPRAL [Concomitant]
     Route: 065
  4. ULTIVA [Concomitant]
     Route: 065
  5. LOVENOX [Concomitant]
     Route: 065
  6. NORADRENALINE [Concomitant]
     Route: 065
  7. INTUBATION [Concomitant]
     Route: 065
  8. VENTILATION [Concomitant]
     Route: 065

REACTIONS (1)
  - PANCYTOPENIA [None]
